FAERS Safety Report 21239417 (Version 1)
Quarter: 2022Q3

REPORT INFORMATION
  Report Type: Spontaneous
  Country: US (occurrence: US)
  Receive Date: 20220822
  Receipt Date: 20220822
  Transmission Date: 20221027
  Serious: No
  Sender: FDA-Public Use
  Company Number: US-BRISTOL-MYERS SQUIBB COMPANY-2022-040634

PATIENT
  Age: 83 Year
  Sex: Male

DRUGS (1)
  1. REVLIMID [Suspect]
     Active Substance: LENALIDOMIDE
     Indication: Plasma cell myeloma
     Dosage: TAKE 1 CAPSULE BY ?MOUTH EVERY DAY ?FOR 21 DAYS OF 28 ?DAY CYCLE
     Route: 048
     Dates: start: 20220506

REACTIONS (6)
  - Asthenia [Unknown]
  - Tremor [Unknown]
  - Dyspepsia [Unknown]
  - Hypotension [Unknown]
  - Skin burning sensation [Unknown]
  - Platelet count decreased [Unknown]
